FAERS Safety Report 9455757 (Version 3)
Quarter: 2013Q3

REPORT INFORMATION
  Report Type: Spontaneous
  Country: US (occurrence: US)
  Receive Date: 20130813
  Receipt Date: 20130823
  Transmission Date: 20140515
  Serious: Yes (Death, Hospitalization, Other)
  Sender: FDA-Public Use
  Company Number: US-JNJFOC-20130805709

PATIENT
  Age: 83 Year
  Sex: Female

DRUGS (1)
  1. XARELTO [Suspect]
     Indication: DEEP VEIN THROMBOSIS
     Route: 048
     Dates: start: 20130723

REACTIONS (3)
  - Retroperitoneal haemorrhage [Fatal]
  - Melaena [Unknown]
  - Haematemesis [Unknown]
